FAERS Safety Report 21112278 (Version 4)
Quarter: 2023Q2

REPORT INFORMATION
  Report Type: Spontaneous
  Country: IN (occurrence: IN)
  Receive Date: 20220721
  Receipt Date: 20230525
  Transmission Date: 20230722
  Serious: Yes (Hospitalization, Other)
  Sender: FDA-Public Use
  Company Number: IN-PFIZER INC-2019417526

PATIENT
  Age: 63 Year
  Sex: Female
  Weight: 74.45 kg

DRUGS (4)
  1. PALBOCICLIB [Suspect]
     Active Substance: PALBOCICLIB
     Indication: Breast cancer metastatic
     Dosage: 125 MG, 1X/DAY, FOR 21 DAYS ON 7 DAYS OFF
     Route: 048
     Dates: start: 20181220
  2. LETROZOLE [Concomitant]
     Active Substance: LETROZOLE
     Dosage: 2.5 MG, 1X/DAY, 1 YEAR
     Dates: start: 20181218
  3. CALCIMAX PLUS [CALCIUM CARBONATE;COLECALCIFEROL;MAGNESIUM HYDROXIDE;ZI [Concomitant]
     Dosage: 1 G, DAILY, FOR 3 MONTHS
  4. ZOLEDRONIC ACID [Concomitant]
     Active Substance: ZOLEDRONIC ACID
     Dosage: 4 MG, MONTHLY; INJ OVER 15-20 MIN

REACTIONS (17)
  - Femur fracture [Unknown]
  - Fall [Unknown]
  - Pain in extremity [Unknown]
  - Neoplasm progression [Unknown]
  - Back pain [Unknown]
  - Neck pain [Unknown]
  - Limb injury [Unknown]
  - Oedema peripheral [Unknown]
  - Synovial cyst [Unknown]
  - White blood cell count decreased [Unknown]
  - Haemoglobin decreased [Unknown]
  - Red blood cell count decreased [Unknown]
  - Heart rate increased [Unknown]
  - Blood pressure increased [Unknown]
  - Platelet count decreased [Unknown]
  - Weight increased [Unknown]
  - Osteoporosis [Unknown]

NARRATIVE: CASE EVENT DATE: 20220707
